FAERS Safety Report 14889938 (Version 2)
Quarter: 2018Q2

REPORT INFORMATION
  Report Type: Spontaneous
  Country: US (occurrence: US)
  Receive Date: 20180514
  Receipt Date: 20180606
  Transmission Date: 20180711
  Serious: Yes (Hospitalization, Other)
  Sender: FDA-Public Use
  Company Number: US-TEVA-2018-US-890600

PATIENT
  Sex: Female

DRUGS (2)
  1. ADDERALL [Suspect]
     Active Substance: AMPHETAMINE ASPARTATE\AMPHETAMINE SULFATE\DEXTROAMPHETAMINE SACCHARATE\DEXTROAMPHETAMINE SULFATE
     Indication: ATTENTION DEFICIT/HYPERACTIVITY DISORDER
     Dosage: 90 MILLIGRAM DAILY;
     Route: 065
     Dates: start: 2013, end: 2013
  2. ADDERALL [Suspect]
     Active Substance: AMPHETAMINE ASPARTATE\AMPHETAMINE SULFATE\DEXTROAMPHETAMINE SACCHARATE\DEXTROAMPHETAMINE SULFATE
     Dosage: 1/2 TABLET TWICE A DAY
     Route: 065

REACTIONS (7)
  - Hypertension [Unknown]
  - Weight increased [Unknown]
  - Nausea [Unknown]
  - Migraine [Unknown]
  - Vision blurred [Unknown]
  - Renal failure [Recovering/Resolving]
  - Headache [Unknown]
